FAERS Safety Report 24965908 (Version 1)
Quarter: 2025Q1

REPORT INFORMATION
  Report Type: Spontaneous
  Country: US (occurrence: None)
  Receive Date: 20250212
  Receipt Date: 20250212
  Transmission Date: 20250409
  Serious: Yes (Hospitalization)
  Sender: FDA-CTU
  Company Number: None

PATIENT
  Age: 45 Year
  Sex: Male

DRUGS (1)
  1. SULFUR HEXAFLUORIDE [Suspect]
     Active Substance: SULFUR HEXAFLUORIDE
     Dates: start: 20250130, end: 20250130

REACTIONS (3)
  - Contrast media reaction [None]
  - Anaphylactic reaction [None]
  - Syncope [None]

NARRATIVE: CASE EVENT DATE: 20250130
